FAERS Safety Report 8857216 (Version 2)
Quarter: 2012Q4

REPORT INFORMATION
  Report Type: 
  Country: US (occurrence: US)
  Receive Date: 20121024
  Receipt Date: 20121119
  Transmission Date: 20130627
  Serious: Yes (Hospitalization)
  Sender: FDA-Public Use
  Company Number: US-ELI_LILLY_AND_COMPANY-US201210004707

PATIENT
  Sex: Female
  Weight: 59.86 kg

DRUGS (1)
  1. FORTEO [Suspect]
     Dosage: 20 ug, qd
     Route: 058
     Dates: start: 201201

REACTIONS (2)
  - Gastric ulcer [Unknown]
  - Cholelithiasis [Unknown]
